FAERS Safety Report 21186814 (Version 1)
Quarter: 2022Q3

REPORT INFORMATION
  Report Type: Spontaneous
  Country: US (occurrence: US)
  Receive Date: 20220808
  Receipt Date: 20220808
  Transmission Date: 20221027
  Serious: No
  Sender: FDA-Public Use
  Company Number: US-MYLANLABS-2022M1082216

PATIENT
  Sex: Female

DRUGS (1)
  1. WIXELA INHUB [Suspect]
     Active Substance: FLUTICASONE PROPIONATE\SALMETEROL XINAFOATE
     Indication: Pulmonary fibrosis
     Dosage: UNK 250/50 MICROGRAM, BID
     Route: 055

REACTIONS (4)
  - Extra dose administered [Unknown]
  - Off label use [Unknown]
  - Wrong technique in device usage process [Unknown]
  - Device issue [Unknown]
